FAERS Safety Report 6237768-8 (Version None)
Quarter: 2009Q2

REPORT INFORMATION
  Report Type: 
  Country: None (occurrence: None)
  Receive Date: 20090618
  Receipt Date: 20090609
  Transmission Date: 20091009
  Serious: Yes (Other)
  Sender: FDA-Public Use
  Company Number: 2009SP010930

PATIENT
  Age: 50 Year
  Sex: Male

DRUGS (6)
  1. PEG-INTRON [Suspect]
     Indication: HEPATITIS C
     Dosage: SC
     Route: 058
     Dates: start: 20090309
  2. RIBAVIRIN [Suspect]
     Indication: HEPATITIS C
     Dosage: 800 MG; TID; PO
     Route: 048
     Dates: start: 20090309
  3. BENICAR [Concomitant]
  4. KEPPRA [Concomitant]
  5. NEXIUM [Concomitant]
  6. LACTULOSE [Concomitant]

REACTIONS (9)
  - ALTERED VISUAL DEPTH PERCEPTION [None]
  - AMMONIA INCREASED [None]
  - BLINDNESS [None]
  - BLOOD SODIUM DECREASED [None]
  - COLOUR BLINDNESS ACQUIRED [None]
  - HALO VISION [None]
  - OPTIC NEUROPATHY [None]
  - PHOTOPHOBIA [None]
  - VISUAL FIELD DEFECT [None]
